FAERS Safety Report 15661184 (Version 1)
Quarter: 2018Q4

REPORT INFORMATION
  Report Type: Spontaneous
  Country: US (occurrence: US)
  Receive Date: 20181127
  Receipt Date: 20181127
  Transmission Date: 20190205
  Serious: No
  Sender: FDA-Public Use
  Company Number: US-009507513-1811USA009005

PATIENT
  Age: 45 Year
  Sex: Male

DRUGS (2)
  1. M-M-R II [Suspect]
     Active Substance: MEASLES VIRUS STRAIN ENDERS^ ATTENUATED EDMONSTON LIVE ANTIGEN\MUMPS VIRUS STRAIN B LEVEL JERYL LYNN LIVE ANTIGEN\RUBELLA VIRUS STRAIN WISTAR RA 27/3 LIVE ANTIGEN
     Indication: PROPHYLAXIS
     Route: 059
     Dates: start: 20181117
  2. STERILE DILUENT (WATER) [Suspect]
     Active Substance: WATER

REACTIONS (2)
  - No adverse event [Unknown]
  - Expired product administered [Unknown]

NARRATIVE: CASE EVENT DATE: 20181117
